FAERS Safety Report 23229281 (Version 1)
Quarter: 2023Q4

REPORT INFORMATION
  Report Type: Spontaneous
  Country: JP (occurrence: JP)
  Receive Date: 20231127
  Receipt Date: 20231127
  Transmission Date: 20240110
  Serious: Yes (Other)
  Sender: FDA-Public Use
  Company Number: JP-CHEPLA-2023014775

PATIENT
  Age: 24 Year
  Sex: Male

DRUGS (13)
  1. VALGANCICLOVIR [Suspect]
     Active Substance: VALGANCICLOVIR
     Indication: Cytomegalovirus infection
     Route: 048
  2. VALGANCICLOVIR [Suspect]
     Active Substance: VALGANCICLOVIR
     Indication: Cytomegalovirus infection
     Dosage: DAILY DOSE: 900 MILLIGRAM
  3. VALGANCICLOVIR [Suspect]
     Active Substance: VALGANCICLOVIR
     Indication: Cytomegalovirus infection
     Dosage: WITHIN 23 DAYS
  4. VALGANCICLOVIR [Suspect]
     Active Substance: VALGANCICLOVIR
     Indication: Cytomegalovirus infection
     Dosage: ADMINISTERED AGAIN ?DAILY DOSE: 900 MILLIGRAM
  5. GANCICLOVIR [Suspect]
     Active Substance: GANCICLOVIR
     Dosage: 250 MG/DAY (5 MG/KG/DAY)?DAILY DOSE: 250 MILLIGRAM
     Route: 042
  6. GANCICLOVIR [Suspect]
     Active Substance: GANCICLOVIR
  7. MYCOPHENOLATE MOFETIL [Suspect]
     Active Substance: MYCOPHENOLATE MOFETIL
     Indication: Immunosuppression
  8. MYCOPHENOLATE MOFETIL [Suspect]
     Active Substance: MYCOPHENOLATE MOFETIL
     Indication: Immunosuppression
     Dosage: DAILY DOSE: 500 MILLIGRAM
  9. HUMAN IMMUNOGLOBULIN G [Suspect]
     Active Substance: HUMAN IMMUNOGLOBULIN G
     Dosage: DOSE OF 5 G/DAY (100 MG/KG/DAY) FOR 3 DAYS. ?DAILY DOSE: 5 GRAM
     Route: 042
  10. EVEROLIMUS [Suspect]
     Active Substance: EVEROLIMUS
  11. BASILIXIMAB [Concomitant]
     Active Substance: BASILIXIMAB
  12. TACROLIMUS [Concomitant]
     Active Substance: TACROLIMUS
     Indication: Immunosuppression
  13. METHYLPREDNISOLONE [Concomitant]
     Active Substance: METHYLPREDNISOLONE
     Indication: Immunosuppression

REACTIONS (4)
  - Immune thrombocytopenia [Unknown]
  - Leukopenia [Unknown]
  - Helicobacter infection [Unknown]
  - Off label use [Unknown]
